FAERS Safety Report 6492336-8 (Version None)
Quarter: 2009Q4

REPORT INFORMATION
  Report Type: 
  Country: None (occurrence: None)
  Receive Date: 20091208
  Receipt Date: 20091126
  Transmission Date: 20100525
  Serious: Yes (Other)
  Sender: FDA-Public Use
  Company Number: 2009SP024528

PATIENT
  Age: 36 Year
  Sex: Female
  Weight: 56 kg

DRUGS (3)
  1. NUVARING [Suspect]
     Indication: CONTRACEPTION
     Dosage: VAG
     Route: 067
     Dates: start: 20090818, end: 20090906
  2. PANTOGAR ( VITAMIN B1, CALCIUM D-PANTOTHENATE, VICAR-YEAST, L-CYSTINE, [Suspect]
     Indication: ALOPECIA
     Dates: start: 20090101, end: 20090901
  3. LEVOTHYROXINE SODIUM [Concomitant]

REACTIONS (3)
  - ALOPECIA [None]
  - METRORRHAGIA [None]
  - TACHYCARDIA [None]
